FAERS Safety Report 13828821 (Version 1)
Quarter: 2017Q3

REPORT INFORMATION
  Report Type: Spontaneous
  Country: US (occurrence: US)
  Receive Date: 20170803
  Receipt Date: 20170803
  Transmission Date: 20171127
  Serious: Yes (Hospitalization, Other)
  Sender: FDA-Public Use
  Company Number: US-APOTEX-2012AP002384

PATIENT
  Age: 55 Year
  Sex: Male
  Weight: 102 kg

DRUGS (15)
  1. VALPROIC ACID ORAL SOLUTION USP [Interacting]
     Active Substance: VALPROIC ACID
     Dosage: 750 MG, TID
     Route: 042
  2. VANCOMYCIN [Concomitant]
     Active Substance: VANCOMYCIN
     Dosage: UNK
     Route: 054
  3. METRONIDAZOLE. [Concomitant]
     Active Substance: METRONIDAZOLE
     Dosage: UNK
     Route: 042
  4. VALPROIC ACID ORAL SOLUTION USP [Interacting]
     Active Substance: VALPROIC ACID
     Dosage: 500 MG, Q.6H
     Route: 048
  5. MEROPENEM. [Interacting]
     Active Substance: MEROPENEM
     Indication: PRODUCT USED FOR UNKNOWN INDICATION
     Route: 042
  6. VALPROIC ACID ORAL SOLUTION USP [Interacting]
     Active Substance: VALPROIC ACID
     Dosage: 2 G, BOLUS
     Route: 042
  7. VALPROIC ACID ORAL SOLUTION USP [Suspect]
     Active Substance: VALPROIC ACID
     Indication: SEIZURE
     Dosage: 500 MG, TID
     Route: 048
  8. VANCOMYCIN [Concomitant]
     Active Substance: VANCOMYCIN
     Dosage: UNK
     Route: 042
  9. METRONIDAZOLE. [Concomitant]
     Active Substance: METRONIDAZOLE
     Indication: PRODUCT USED FOR UNKNOWN INDICATION
     Route: 065
  10. AMIKACIN [Concomitant]
     Active Substance: AMIKACIN
     Indication: PRODUCT USED FOR UNKNOWN INDICATION
     Route: 065
  11. LEVETIRACETAM. [Concomitant]
     Active Substance: LEVETIRACETAM
     Dosage: UNK
     Route: 042
  12. LINEZOLID. [Concomitant]
     Active Substance: LINEZOLID
     Indication: PRODUCT USED FOR UNKNOWN INDICATION
     Route: 042
  13. VALPROIC ACID ORAL SOLUTION USP [Interacting]
     Active Substance: VALPROIC ACID
     Dosage: 3 G, UNK
     Route: 042
  14. VANCOMYCIN [Concomitant]
     Active Substance: VANCOMYCIN
     Indication: PRODUCT USED FOR UNKNOWN INDICATION
     Dosage: UNK
     Route: 065
  15. LEVETIRACETAM. [Concomitant]
     Active Substance: LEVETIRACETAM
     Indication: EPILEPSY
     Dosage: UNK
     Route: 048

REACTIONS (3)
  - Epilepsy [Recovered/Resolved]
  - Drug level decreased [Recovered/Resolved]
  - Inhibitory drug interaction [Unknown]
